FAERS Safety Report 13088778 (Version 1)
Quarter: 2017Q1

REPORT INFORMATION
  Report Type: Spontaneous
  Country: US (occurrence: US)
  Receive Date: 20170105
  Receipt Date: 20170105
  Transmission Date: 20170428
  Serious: No
  Sender: FDA-Public Use
  Company Number: None

PATIENT
  Age: 53 Year
  Sex: Male
  Weight: 175 kg

DRUGS (1)
  1. GENERIC ATIVAN [Suspect]
     Active Substance: LORAZEPAM
     Indication: INSOMNIA
     Route: 048

REACTIONS (2)
  - Therapeutic response changed [None]
  - Product substitution issue [None]

NARRATIVE: CASE EVENT DATE: 2007
